FAERS Safety Report 4332102-2 (Version None)
Quarter: 2004Q2

REPORT INFORMATION
  Report Type: 
  Country: None (occurrence: None)
  Receive Date: 20040402
  Receipt Date: 20040402
  Transmission Date: 20050107
  Serious: Yes (Life-Threatening)
  Sender: FDA-Public Use
  Company Number: None

PATIENT
  Sex: Male
  Weight: 65 kg

DRUGS (2)
  1. DEMEROL [Suspect]
     Indication: SICKLE CELL ANAEMIA WITH CRISIS
     Dosage: 50-75 MG IV Q 3-4 H PRN
     Route: 042
  2. DILAUDID [Suspect]
     Indication: SICKLE CELL ANAEMIA WITH CRISIS
     Dosage: 6-8 MG IV Q 3-4 H PRN
     Route: 042

REACTIONS (2)
  - COMA [None]
  - RESPIRATORY RATE DECREASED [None]
